FAERS Safety Report 5935226-9 (Version None)
Quarter: 2008Q4

REPORT INFORMATION
  Report Type: 
  Country: None (occurrence: None)
  Receive Date: 20081014
  Receipt Date: 20080730
  Transmission Date: 20090506
  Serious: Yes (Other)
  Sender: FDA-Public Use
  Company Number: IMP_03836_2008

PATIENT
  Age: 48 Year
  Sex: Female

DRUGS (4)
  1. BUPROPION (IMPAX) [Suspect]
     Indication: DEPRESSION
     Dosage: (DF)
  2. CITALOPRAM HYDROBROMIDE [Concomitant]
  3. GABAPENTIN [Concomitant]
  4. ALPRAZOLAM [Concomitant]

REACTIONS (1)
  - SUICIDAL IDEATION [None]
